FAERS Safety Report 14328335 (Version 2)
Quarter: 2018Q1

REPORT INFORMATION
  Report Type: Report from Study
  Country: US (occurrence: US)
  Receive Date: 20171227
  Receipt Date: 20180131
  Transmission Date: 20180509
  Serious: Yes (Other)
  Sender: FDA-Public Use
  Company Number: US-ASTELLAS-2017US048445

PATIENT
  Age: 81 Year
  Sex: Male

DRUGS (1)
  1. ENZALUTAMIDE [Suspect]
     Active Substance: ENZALUTAMIDE
     Indication: PROSTATE CANCER
     Route: 048
     Dates: start: 20171025

REACTIONS (8)
  - Vision blurred [Unknown]
  - Musculoskeletal pain [Unknown]
  - Confusional state [Unknown]
  - Dyspnoea [Unknown]
  - Atrial fibrillation [Unknown]
  - Skin discolouration [Unknown]
  - Sleep disorder [Unknown]
  - Pain in extremity [Unknown]

NARRATIVE: CASE EVENT DATE: 20171118
